FAERS Safety Report 6216601-4 (Version None)
Quarter: 2009Q2

REPORT INFORMATION
  Report Type: 
  Country: None (occurrence: None)
  Receive Date: 20090603
  Receipt Date: 20090603
  Transmission Date: 20091009
  Serious: Yes (Other)
  Sender: FDA-Public Use
  Company Number: None

PATIENT
  Sex: Female
  Weight: 147.419 kg

DRUGS (1)
  1. ULTRAM [Suspect]
     Indication: HYPERSENSITIVITY
     Dosage: 25 MG AS NEEDED FOR PAIN PO
     Route: 048
     Dates: start: 20090601, end: 20090601

REACTIONS (4)
  - DRUG HYPERSENSITIVITY [None]
  - DYSPNOEA [None]
  - PHARYNGEAL OEDEMA [None]
  - TONGUE OEDEMA [None]
